FAERS Safety Report 5312560-7 (Version None)
Quarter: 2007Q2

REPORT INFORMATION
  Report Type: 
  Country: None (occurrence: None)
  Receive Date: 20070430
  Receipt Date: 20070104
  Transmission Date: 20071010
  Serious: No
  Sender: FDA-Public Use
  Company Number: 2007UW00217

PATIENT
  Age: 54 Year
  Sex: Female
  Weight: 121.6 kg

DRUGS (6)
  1. NEXIUM [Suspect]
     Route: 048
     Dates: start: 20061205
  2. CALAN [Concomitant]
  3. K-DUR 10 [Concomitant]
  4. MAXZIDE [Concomitant]
  5. KLONIPIN [Concomitant]
  6. NAPROSYN [Concomitant]

REACTIONS (3)
  - ABDOMINAL PAIN [None]
  - BLOOD GLUCOSE INCREASED [None]
  - DIARRHOEA [None]
